FAERS Safety Report 9539343 (Version 1)
Quarter: 2013Q3

REPORT INFORMATION
  Report Type: Spontaneous
  Country: RU (occurrence: None)
  Receive Date: 20130917
  Receipt Date: 20130917
  Transmission Date: 20140515
  Serious: No
  Sender: FDA-Public Use
  Company Number: 1309RUS002767

PATIENT
  Sex: Female

DRUGS (1)
  1. CEDAX [Suspect]
     Route: 048

REACTIONS (3)
  - Nausea [None]
  - Asthenia [None]
  - Hyperhidrosis [None]
